FAERS Safety Report 23599593 (Version 1)
Quarter: 2024Q1

REPORT INFORMATION
  Report Type: Spontaneous
  Country: US (occurrence: US)
  Receive Date: 20240306
  Receipt Date: 20240306
  Transmission Date: 20240409
  Serious: Yes (Hospitalization)
  Sender: FDA-Public Use
  Company Number: US-UPSHER-SMITH LABORATORIES, LLC-2024USL00199

PATIENT

DRUGS (2)
  1. VIGADRONE [Suspect]
     Active Substance: VIGABATRIN
     Indication: Infantile spasms
     Dosage: ADMINISTER 1000 MG (20 ML) BY MOUTH TWICE DAILY AS DIRECTED.
     Route: 048
     Dates: start: 20200311
  2. VIGADRONE [Suspect]
     Active Substance: VIGABATRIN
     Dosage: ADMINISTER 1000 MG (20 ML) BY MOUTH TWICE DAILY AS DIRECTED.
     Route: 048

REACTIONS (2)
  - Oxygen saturation decreased [Unknown]
  - Pyrexia [Unknown]
